FAERS Safety Report 4292517-8 (Version None)
Quarter: 2004Q1

REPORT INFORMATION
  Report Type: 
  Country: None (occurrence: None)
  Receive Date: 20040126
  Receipt Date: 20031007
  Transmission Date: 20041129
  Serious: No
  Sender: FDA-Public Use
  Company Number: USA031049253

PATIENT
  Age: 40 Year
  Sex: Female
  Weight: 55 kg

DRUGS (7)
  1. FORTEO [Suspect]
     Indication: OSTEOPOROSIS
     Dates: start: 20030901
  2. FOSAMAX [Concomitant]
  3. FLUOXETINE HCL [Concomitant]
  4. DETROL [Concomitant]
  5. VALIUM [Concomitant]
  6. NEURONTIN [Concomitant]
  7. AVONEX [Concomitant]

REACTIONS (2)
  - HEADACHE [None]
  - SINUSITIS [None]
